FAERS Safety Report 15993016 (Version 2)
Quarter: 2019Q1

REPORT INFORMATION
  Report Type: Spontaneous
  Country: TW (occurrence: TW)
  Receive Date: 20190221
  Receipt Date: 20190228
  Transmission Date: 20190418
  Serious: Yes (Hospitalization)
  Sender: FDA-Public Use
  Company Number: TW-AMGEN-TWNSP2019027930

PATIENT
  Age: 80 Year
  Sex: Female

DRUGS (3)
  1. TRAMACET [Concomitant]
     Active Substance: ACETAMINOPHEN\TRAMADOL
     Indication: RHEUMATOID ARTHRITIS
     Dosage: 1 DF, BID
  2. ENBREL [Suspect]
     Active Substance: ETANERCEPT
     Indication: RHEUMATOID ARTHRITIS
     Dosage: 25 MG, TWICE A WEEK (BIW)
     Route: 058
     Dates: start: 20170412
  3. TRAMACET [Concomitant]
     Active Substance: ACETAMINOPHEN\TRAMADOL
     Dosage: 1 DF, BID

REACTIONS (2)
  - Headache [Recovered/Resolved]
  - Chest discomfort [Recovered/Resolved]

NARRATIVE: CASE EVENT DATE: 201902
